FAERS Safety Report 6811234-0 (Version None)
Quarter: 2010Q2

REPORT INFORMATION
  Report Type: 
  Country: None (occurrence: None)
  Receive Date: 20100630
  Receipt Date: 20090915
  Transmission Date: 20101027
  Serious: No
  Sender: FDA-Public Use
  Company Number: US-AMGEN-KDL362024

PATIENT
  Sex: Female
  Weight: 81.7 kg

DRUGS (10)
  1. PROCRIT [Suspect]
     Indication: ANAEMIA
     Dates: start: 20060101
  2. VITAMINS [Concomitant]
  3. ASPIRIN [Concomitant]
  4. CARVEDILOL [Concomitant]
  5. UNSPECIFIED MEDICATION [Concomitant]
  6. NEXIUM [Concomitant]
  7. LISINOPRIL [Concomitant]
  8. NORVASC [Concomitant]
  9. SIMVASTATIN [Concomitant]
  10. FLOMAX [Concomitant]

REACTIONS (1)
  - HAEMOGLOBIN DECREASED [None]
